FAERS Safety Report 8417507-2 (Version None)
Quarter: 2012Q2

REPORT INFORMATION
  Report Type: 
  Country: None (occurrence: None)
  Receive Date: 20120606
  Receipt Date: 20120523
  Transmission Date: 20120825
  Serious: Yes (Death, Life-Threatening, Other)
  Sender: FDA-Public Use
  Company Number: GR-UCBSA-058465

PATIENT
  Sex: Male

DRUGS (10)
  1. ROTIGOTINE [Suspect]
     Route: 062
  2. PRAMIPEXOLE DIHYDROCHLORIDE [Concomitant]
  3. QUETIAPINE [Concomitant]
  4. CARBIDOPA [Concomitant]
  5. PIPERACILLIN [Concomitant]
  6. AMANTADINE HCL [Concomitant]
  7. TAZOBACTAM [Concomitant]
  8. HEPARIN XMB [Concomitant]
  9. LEVODOPA [Concomitant]
  10. PIRACETAM [Suspect]

REACTIONS (8)
  - CLONIC CONVULSION [None]
  - MUSCLE RIGIDITY [None]
  - PYREXIA [None]
  - DELIRIUM [None]
  - SINUS TACHYCARDIA [None]
  - DEATH [None]
  - NEUROLEPTIC MALIGNANT SYNDROME [None]
  - HYPERKINESIA [None]
